FAERS Safety Report 8005596-9 (Version None)
Quarter: 2011Q4

REPORT INFORMATION
  Report Type: 
  Country: None (occurrence: None)
  Receive Date: 20111223
  Receipt Date: 20111220
  Transmission Date: 20120403
  Serious: Yes (Death)
  Sender: FDA-Public Use
  Company Number: US-JNJFOC-20110906842

PATIENT
  Sex: Female
  Weight: 59.42 kg

DRUGS (3)
  1. NUCYNTA [Suspect]
     Indication: PAIN
     Dosage: 1-2 TABLETS EVERY 4 HRS AS NEEDED
     Route: 065
     Dates: start: 20110727
  2. NUCYNTA [Suspect]
     Indication: PERITONSILLAR ABSCESS
     Dosage: 1-2 TABLETS EVERY 4 HRS AS NEEDED
     Route: 065
     Dates: start: 20110727
  3. TYLENOL W/ CODEINE NO. 3 [Suspect]
     Indication: PERITONSILLAR ABSCESS
     Route: 065

REACTIONS (5)
  - HEPATITIS ACUTE [None]
  - MULTIPLE DRUG OVERDOSE [None]
  - RESPIRATORY FAILURE [None]
  - INFECTIOUS MONONUCLEOSIS [None]
  - TOXICITY TO VARIOUS AGENTS [None]
